FAERS Safety Report 21609013 (Version 1)
Quarter: 2022Q4

REPORT INFORMATION
  Report Type: Spontaneous
  Country: US (occurrence: US)
  Receive Date: 20221117
  Receipt Date: 20221117
  Transmission Date: 20230112
  Serious: Yes (Life-Threatening, Other)
  Sender: FDA-Public Use
  Company Number: US-002147023-NVSC2022US258083

PATIENT
  Sex: Female

DRUGS (1)
  1. LEQVIO [Suspect]
     Active Substance: INCLISIRAN SODIUM
     Indication: Product used for unknown indication
     Dosage: UNK, (02 NOV)
     Route: 065

REACTIONS (7)
  - Ill-defined disorder [Unknown]
  - Feeling abnormal [Unknown]
  - Urinary tract infection [Unknown]
  - Body temperature increased [Unknown]
  - Asthenia [Unknown]
  - Pain [Unknown]
  - Feeding disorder [Unknown]
